FAERS Safety Report 6601744-3 (Version None)
Quarter: 2010Q1

REPORT INFORMATION
  Report Type: 
  Country: None (occurrence: None)
  Receive Date: 20100225
  Receipt Date: 20081217
  Transmission Date: 20100710
  Serious: Yes (Disabling)
  Sender: FDA-Public Use
  Company Number: US-BRISTOL-MYERS SQUIBB COMPANY-14425136

PATIENT
  Age: 61 Year
  Sex: Female

DRUGS (19)
  1. ORENCIA [Suspect]
     Indication: RHEUMATOID ARTHRITIS
     Dosage: 3 DOSAGE FORM = 3 VIALS. 2ND INFUSION ON 16NOV08. 30 MINUTES EACH INFUSION
     Route: 042
     Dates: start: 20081016, end: 20081030
  2. METHOTREXATE [Concomitant]
  3. STEROIDS [Concomitant]
  4. ATIVAN [Concomitant]
     Dosage: 2 MG HS
  5. CYMBALTA [Concomitant]
  6. FORTABS [Concomitant]
  7. PRILOSEC [Concomitant]
  8. VICODIN ES [Concomitant]
  9. PREDNISONE [Concomitant]
  10. FLUDROCORTISON [Concomitant]
  11. CELEBREX [Concomitant]
  12. ACTONEL [Concomitant]
  13. GLUCOSAMINE [Concomitant]
  14. VITAMIN D [Concomitant]
  15. VITAMIN C [Concomitant]
  16. VITAMIN E [Concomitant]
  17. VITAMIN B-12 [Concomitant]
  18. CALCIUM + VITAMIN D [Concomitant]
  19. CLARITIN [Concomitant]

REACTIONS (2)
  - STAPHYLOCOCCAL INFECTION [None]
  - VAGINAL LESION [None]
